FAERS Safety Report 7787760-7 (Version None)
Quarter: 2011Q3

REPORT INFORMATION
  Report Type: 
  Country: None (occurrence: None)
  Receive Date: 20110929
  Receipt Date: 20110922
  Transmission Date: 20111222
  Serious: Yes (Other)
  Sender: FDA-Public Use
  Company Number: GT-ABBOTT-10P-069-0677954-00

PATIENT
  Age: 40 Year
  Sex: Female

DRUGS (4)
  1. LAMIVUDINE + ZIDOVUDINE [Concomitant]
     Indication: PROPHYLAXIS
     Dosage: 300MG+150MG TWICE DAILY
     Route: 048
     Dates: start: 20090511
  2. ALUVIA TABLETS 200MG/50MG [Suspect]
     Indication: HUMAN IMMUNODEFICIENCY VIRUS TRANSMISSION
  3. LAMIVUDINE + ZIDOVUDINE [Concomitant]
     Indication: HUMAN IMMUNODEFICIENCY VIRUS TRANSMISSION
  4. ALUVIA TABLETS 200MG/50MG [Suspect]
     Indication: PROPHYLAXIS
     Dosage: TWO 200/50MG TABLETS, TWICE DAILY
     Route: 048
     Dates: start: 20090511

REACTIONS (1)
  - INTRA-UTERINE DEATH [None]
